FAERS Safety Report 9632423 (Version 1)
Quarter: 2013Q4

REPORT INFORMATION
  Report Type: Spontaneous
  Country: US (occurrence: US)
  Receive Date: 20131018
  Receipt Date: 20131018
  Transmission Date: 20140711
  Serious: No
  Sender: FDA-Public Use
  Company Number: US-PFIZER INC-2013296505

PATIENT
  Sex: Female

DRUGS (1)
  1. DEPO-MEDROL [Suspect]
     Indication: PHARYNGITIS
     Dosage: 20 MG, UNK
     Dates: start: 20130722

REACTIONS (4)
  - Off label use [Unknown]
  - Contusion [Unknown]
  - Injection site discolouration [Unknown]
  - Injection site pain [Unknown]
